FAERS Safety Report 9650715 (Version 1)
Quarter: 2013Q4

REPORT INFORMATION
  Report Type: Spontaneous
  Country: FR (occurrence: FR)
  Receive Date: 20131029
  Receipt Date: 20131029
  Transmission Date: 20140711
  Serious: Yes (Other)
  Sender: FDA-Public Use
  Company Number: FR-BRISTOL-MYERS SQUIBB COMPANY-19606938

PATIENT
  Age: 40 Year
  Sex: Female

DRUGS (3)
  1. ABILIFY [Suspect]
     Indication: BIPOLAR DISORDER
     Dosage: ABILIFY ASSOCIATED WITH LITHIUM
  2. LITHIUM [Concomitant]
     Indication: BIPOLAR DISORDER
  3. DIANE-35 [Concomitant]
     Indication: ACNE

REACTIONS (1)
  - Thrombophlebitis superficial [Unknown]
